FAERS Safety Report 16465967 (Version 1)
Quarter: 2019Q2

REPORT INFORMATION
  Report Type: Spontaneous
  Country: JP (occurrence: JP)
  Receive Date: 20190621
  Receipt Date: 20190621
  Transmission Date: 20190711
  Serious: Yes (Hospitalization)
  Sender: FDA-Public Use
  Company Number: PHJP2018JP019941

PATIENT
  Age: 3 Year
  Sex: Male

DRUGS (2)
  1. ACZ885 [Suspect]
     Active Substance: CANAKINUMAB
     Indication: STILL^S DISEASE
     Dosage: 64 MG, QD
     Route: 058
     Dates: start: 20181030
  2. ACTEMRA [Suspect]
     Active Substance: TOCILIZUMAB
     Indication: STILL^S DISEASE
     Dosage: UNK
     Route: 065

REACTIONS (6)
  - Aspartate aminotransferase increased [Recovering/Resolving]
  - Alanine aminotransferase increased [Recovering/Resolving]
  - Autoimmune hepatitis [Recovering/Resolving]
  - Rash [Unknown]
  - Blood lactate dehydrogenase increased [Recovering/Resolving]
  - Apoptosis [Recovering/Resolving]

NARRATIVE: CASE EVENT DATE: 201811
